FAERS Safety Report 9068936 (Version 1)
Quarter: 2013Q1

REPORT INFORMATION
  Report Type: Spontaneous
  Country: US (occurrence: US)
  Receive Date: 20130215
  Receipt Date: 20130215
  Transmission Date: 20140127
  Serious: Yes (Death)
  Sender: FDA-Public Use
  Company Number: US-BANPHARM-20130737

PATIENT
  Age: 64 Year
  Sex: Female

DRUGS (21)
  1. NAPROXEN [Suspect]
     Route: 048
  2. DESIPRAMINE [Suspect]
     Route: 048
  3. DILTIAZEM HYDROCHLORIDE EXTENDED RELEASE [Suspect]
  4. VENLAFAXINE [Suspect]
  5. LAMOTRIGINE [Suspect]
  6. HYDROCHLOROTHIAZIDE [Suspect]
  7. ARMODAFINIL [Suspect]
  8. POTASSIUM CHLORIDE [Suspect]
  9. TRIFLUOPERAZINE [Suspect]
  10. ESCITALOPRAM [Suspect]
  11. UNSPECIFIED INGREDIENT [Suspect]
  12. PANTOPRAZOLE [Suspect]
  13. LANSOPRAZOLE [Suspect]
  14. ROVUSTATIN [Suspect]
  15. NITROFURANTOIN [Suspect]
  16. DICLOFENAC [Suspect]
  17. ACETAMINOPHEN\HYDROCODONE [Suspect]
  18. ACETAMINOPHEN/PROPOXYPHENE [Suspect]
  19. SOLIFENACIN [Suspect]
  20. CIPROFLOXACIN [Suspect]
  21. PROGESTIN [Suspect]

REACTIONS (1)
  - Completed suicide [Fatal]
